FAERS Safety Report 21020817 (Version 1)
Quarter: 2022Q2

REPORT INFORMATION
  Report Type: Spontaneous
  Country: US (occurrence: US)
  Receive Date: 20220629
  Receipt Date: 20220629
  Transmission Date: 20220721
  Serious: Yes (Life-Threatening, Other)
  Sender: FDA-Public Use
  Company Number: US-drreddys-LIT/USA/22/0151617

PATIENT
  Sex: Female

DRUGS (5)
  1. IMATINIB MESYLATE [Suspect]
     Active Substance: IMATINIB MESYLATE
     Indication: Brain stem glioma
  2. CARBOPLATIN [Suspect]
     Active Substance: CARBOPLATIN
     Indication: Brain stem glioma
     Dosage: TWO CYCLES OF CARBOPLATIN AND ETOPOSIDE
  3. CARBOPLATIN [Suspect]
     Active Substance: CARBOPLATIN
     Dosage: TWO CYCLES OF CARBOPLATIN, ETOPOSIDE AND IMATINIB
  4. ETOPOSIDE [Suspect]
     Active Substance: ETOPOSIDE
     Indication: Brain stem glioma
     Dosage: WO CYCLES OF CARBOPLATIN AND ETOPOSIDE
  5. ETOPOSIDE [Suspect]
     Active Substance: ETOPOSIDE
     Dosage: TWO CYCLES OF CARBOPLATIN, ETOPOSIDE AND IMATINIB

REACTIONS (2)
  - Drug ineffective [Unknown]
  - Condition aggravated [Recovered/Resolved]
